FAERS Safety Report 5265771-3 (Version None)
Quarter: 2007Q1

REPORT INFORMATION
  Report Type: 
  Country: None (occurrence: None)
  Receive Date: 20061213
  Receipt Date: 20041228
  Transmission Date: 20070707
  Serious: Yes (Other)
  Sender: FDA-Public Use
  Company Number: 2004UW26180

PATIENT
  Age: 68 Year
  Sex: Female
  Weight: 67.131 kg

DRUGS (4)
  1. IRESSA [Suspect]
     Indication: NON-SMALL CELL LUNG CANCER
     Dates: start: 20041018
  2. OXYCONTIN [Concomitant]
  3. NEURONTIN [Concomitant]
  4. ACTONEL [Concomitant]

REACTIONS (3)
  - ALOPECIA [None]
  - LUNG INFILTRATION [None]
  - TUMOUR MARKER INCREASED [None]
